FAERS Safety Report 14240439 (Version 3)
Quarter: 2018Q4

REPORT INFORMATION
  Report Type: Spontaneous
  Country: US (occurrence: US)
  Receive Date: 20171130
  Receipt Date: 20181003
  Transmission Date: 20190204
  Serious: Yes (Life-Threatening, Hospitalization, Other)
  Sender: FDA-Public Use
  Company Number: US-SA-2017SA234286

PATIENT
  Age: 72 Year
  Sex: Female

DRUGS (6)
  1. CLOPIDOGREL BISULFATE. [Suspect]
     Active Substance: CLOPIDOGREL BISULFATE
     Indication: DEVICE RELATED THROMBOSIS
     Dosage: 75 MG,QD
     Route: 065
  2. ACETYLSALICYLIC ACID [Suspect]
     Active Substance: ASPIRIN
     Dosage: 81 MG,QD
     Route: 065
  3. ACETYLSALICYLIC ACID [Suspect]
     Active Substance: ASPIRIN
     Dosage: 81 MG,QD
     Route: 065
  4. WARFARIN [Concomitant]
     Active Substance: WARFARIN
     Dosage: UNK UNK,UNK
     Route: 065
  5. WARFARIN [Concomitant]
     Active Substance: WARFARIN
     Indication: GASTROINTESTINAL HAEMORRHAGE
     Dosage: UNK UNK,UNK
     Route: 065
  6. ACETYLSALICYLIC ACID [Suspect]
     Active Substance: ASPIRIN
     Dosage: 325 MG,QD
     Route: 065

REACTIONS (4)
  - Drug ineffective [Unknown]
  - Transient ischaemic attack [Recovered/Resolved]
  - Facial paresis [Recovered/Resolved]
  - Device related thrombosis [Recovered/Resolved]
